FAERS Safety Report 10596525 (Version 8)
Quarter: 2015Q2

REPORT INFORMATION
  Report Type: Spontaneous
  Country: US (occurrence: US)
  Receive Date: 20141120
  Receipt Date: 20150430
  Transmission Date: 20150821
  Serious: Yes (Hospitalization)
  Sender: FDA-Public Use
  Company Number: US-UNITED THERAPEUTICS-UNT-2014-010114

PATIENT
  Age: 52 Year
  Sex: Female
  Weight: 72.56 kg

DRUGS (12)
  1. ORENITRAM [Suspect]
     Active Substance: TREPROSTINIL
     Dosage: 3 MG, Q9PM
     Route: 048
  2. ORENITRAM [Suspect]
     Active Substance: TREPROSTINIL
     Dosage: 3 MG , BID
     Route: 048
  3. WARFARIN [Concomitant]
     Active Substance: WARFARIN
     Indication: PRODUCT USED FOR UNKNOWN INDICATION
  4. ORENITRAM [Suspect]
     Active Substance: TREPROSTINIL
     Indication: PULMONARY ARTERIAL HYPERTENSION
     Dosage: 2.5 MG, TID
     Route: 048
     Dates: start: 20141015
  5. ORENITRAM [Suspect]
     Active Substance: TREPROSTINIL
     Dosage: 4 MG, Q8H
     Route: 048
     Dates: start: 20141017
  6. ORENITRAM [Suspect]
     Active Substance: TREPROSTINIL
     Dosage: 5 MG, TID
     Route: 048
     Dates: start: 20141017
  7. ORENITRAM [Suspect]
     Active Substance: TREPROSTINIL
     Dosage: 2.75 MG, TID
     Route: 048
     Dates: start: 20141017
  8. ORENITRAM [Suspect]
     Active Substance: TREPROSTINIL
     Dosage: 3.5 MG, Q7AM AND 3 PM
     Route: 048
     Dates: start: 20141015
  9. VELETRI [Concomitant]
     Active Substance: EPOPROSTENOL
     Indication: PRODUCT USED FOR UNKNOWN INDICATION
  10. ORENITRAM [Suspect]
     Active Substance: TREPROSTINIL
     Dosage: 2.5 MG MORNING AND AFTERNOON AND 2 MG EVENING
     Route: 048
     Dates: start: 20141017
  11. ORENITRAM [Suspect]
     Active Substance: TREPROSTINIL
     Dosage: 3.5 MG, Q8H
     Route: 048
     Dates: start: 20141017
  12. ORENITRAM [Suspect]
     Active Substance: TREPROSTINIL
     Dosage: UNK
     Dates: start: 20141113

REACTIONS (21)
  - Hypotension [Unknown]
  - Flushing [Unknown]
  - Headache [Recovered/Resolved]
  - Skin discolouration [Unknown]
  - Inappropriate schedule of drug administration [Unknown]
  - Head discomfort [Unknown]
  - Condition aggravated [Unknown]
  - Drug effect decreased [Unknown]
  - Pain in extremity [Unknown]
  - Dyspnoea [Not Recovered/Not Resolved]
  - Muscle tightness [Unknown]
  - Sciatica [Unknown]
  - Muscle spasms [Unknown]
  - Back pain [Unknown]
  - Diabetes mellitus [Unknown]
  - Myalgia [Not Recovered/Not Resolved]
  - Chest pain [Recovered/Resolved]
  - Nausea [Unknown]
  - Arthralgia [Unknown]
  - Heart rate increased [Unknown]
  - Hunger [Unknown]

NARRATIVE: CASE EVENT DATE: 2014
